FAERS Safety Report 9621448 (Version 1)
Quarter: 2013Q4

REPORT INFORMATION
  Report Type: Spontaneous
  Country: US (occurrence: US)
  Receive Date: 20131015
  Receipt Date: 20131015
  Transmission Date: 20140711
  Serious: Yes (Other)
  Sender: FDA-Public Use
  Company Number: US-SA-2013SA100555

PATIENT
  Age: 73 Year
  Sex: Female

DRUGS (5)
  1. AVAPRO [Suspect]
     Indication: CARDIAC DISORDER
     Route: 048
     Dates: start: 1993, end: 2013
  2. ECOTRIN [Suspect]
     Indication: HYPERCHLORHYDRIA
     Route: 065
     Dates: start: 1995
  3. ECOTRIN [Suspect]
     Indication: HYPERCHLORHYDRIA
     Route: 065
  4. NIFEDIPINE [Suspect]
     Indication: BLOOD PRESSURE
     Route: 065
  5. PREVACID [Concomitant]

REACTIONS (5)
  - Gastric ulcer [Unknown]
  - Hyperchlorhydria [Unknown]
  - Malaise [Unknown]
  - Dizziness [Unknown]
  - Asthenia [Unknown]
